FAERS Safety Report 8395927-2 (Version None)
Quarter: 2012Q2

REPORT INFORMATION
  Report Type: 
  Country: None (occurrence: None)
  Receive Date: 20120529
  Receipt Date: 20120529
  Transmission Date: 20120825
  Serious: Yes (Disabling)
  Sender: FDA-Public Use
  Company Number: None

PATIENT
  Age: 53 Year
  Sex: Female

DRUGS (1)
  1. BONIVA [Suspect]
     Indication: OSTEOARTHRITIS
     Dosage: 150 MG ONCE MONTHLY

REACTIONS (3)
  - RASH [None]
  - VERTIGO [None]
  - HYPERHIDROSIS [None]
